FAERS Safety Report 5225631-0 (Version None)
Quarter: 2007Q1

REPORT INFORMATION
  Report Type: 
  Country: None (occurrence: None)
  Receive Date: 20061201
  Receipt Date: 20061103
  Transmission Date: 20070707
  Serious: Yes (Death)
  Sender: FDA-Public Use
  Company Number: US200601004296

PATIENT
  Age: 28 Year
  Sex: Male
  Weight: 95 kg

DRUGS (3)
  1. CYMBALTA [Suspect]
     Dosage: 60 MG, ORAL
     Route: 048
     Dates: start: 20041105
  2. SEROQUEL [Concomitant]
  3. NALTREXONE (NALTREXONE) [Concomitant]

REACTIONS (1)
  - COMPLETED SUICIDE [None]
